FAERS Safety Report 11911331 (Version 2)
Quarter: 2016Q1

REPORT INFORMATION
  Report Type: Spontaneous
  Country: US (occurrence: US)
  Receive Date: 20160112
  Receipt Date: 20160208
  Transmission Date: 20160526
  Serious: Yes (Death, Life-Threatening, Congenital Anomaly, Other)
  Sender: FDA-Public Use
  Company Number: US-CTI_01850_2016

PATIENT
  Age: 13 Year
  Sex: Male

DRUGS (25)
  1. PROTOPIC 0.03% [Concomitant]
     Indication: RASH
     Dosage: DF, BID
  2. BUDESONIDE. [Concomitant]
     Active Substance: BUDESONIDE
     Dosage: 0.5 MG/2ML, BID WHEN WELL; 1.0 MG/4 ML, BID FOR 1 WEEK WHEN SICK
     Route: 055
  3. PEDIASURE [Concomitant]
     Active Substance: VITAMINS
     Dosage: 8 OZ, 5 TIMES PER DAY
  4. VIGAMOX 0.5% [Concomitant]
     Dosage: 0.5 %: 2 DROPS BOTH EYES BID FOR 7-10 DAYS
  5. DIASTAT PEDIATRIC [Concomitant]
     Dosage: 2.5 MG MISC, AS DIRECTED PER NEUROLOGY
  6. RANITIDINE [Concomitant]
     Active Substance: RANITIDINE\RANITIDINE HYDROCHLORIDE
     Dosage: 15 MG/ML
     Route: 048
  7. THE VEST, AIRWAY CLEARANCE SYSTEM [Concomitant]
     Dosage: DF, 20 MIN, BID (INCREASE WITH EVERY NEBULIZER TREATMENT WHEN SICK)
  8. XOPENEX [Concomitant]
     Active Substance: LEVALBUTEROL HYDROCHLORIDE
     Dosage: 1 VIAL Q8H AND Q6H PRN
  9. PULMOZYME [Concomitant]
     Active Substance: DORNASE ALFA
     Dosage: 1 MG/ML BID
     Route: 055
  10. DIAZEPAM. [Concomitant]
     Active Substance: DIAZEPAM
     Dosage: 2 ML AM AND 3ML QHS AS DIRECTED PER NEURO
  11. LEVALBUTEROL HCL [Concomitant]
     Active Substance: LEVALBUTEROL HYDROCHLORIDE
     Dosage: 1.25 MG/3ML, QID; 1.25 MG/3ML Q3-4H PRN
     Route: 055
  12. TRILOGY VENTILATOR IN BIPAP MODE [Concomitant]
     Dosage: IPAP 13, EPAP 6, BACK UP RATE 6 WITH 21=25% OXYGEN
  13. PROAIR HFA 108 (90 BASE) MCG/ACT AERS (ALBUTEROL SULFATE) [Concomitant]
     Indication: WHEEZING
     Dosage: 2 PUFFS Q4-6H PRN
  14. IPV [Concomitant]
     Dosage: DF, BID
  15. DEPAKENE [Concomitant]
     Active Substance: VALPROIC ACID
     Dosage: 250 MG/5ML: 5 CC, TID
  16. IPRATROPIUM BROMIDE. [Concomitant]
     Active Substance: IPRATROPIUM BROMIDE
     Dosage: 0.02 %: 1 VIAL Q8H WITH 1 VIAL XOPENEX Q8H; AND Q6H PRN
  17. CUVPOSA [Concomitant]
     Active Substance: GLYCOPYRROLATE
     Indication: INCREASED BRONCHIAL SECRETION
     Dosage: 1 MG/5ML: 1-2 CC TID
  18. 5.0 PEDIATRIC SHILEY [Concomitant]
     Dosage: 65 MM LENGTH, UNKNOWN
  19. BACLOFEN. [Concomitant]
     Active Substance: BACLOFEN
  20. CARNITINE [Concomitant]
     Active Substance: CARNITINE
     Dosage: 1.5 ML, TID
  21. PERFOROMIST [Concomitant]
     Active Substance: FORMOTEROL FUMARATE DIHYDRATE
     Dosage: 20 MCG/ 2 ML, TWO TIMES PER DAY
     Route: 055
  22. BETHKIS [Suspect]
     Active Substance: TOBRAMYCIN
     Indication: CYSTIC FIBROSIS
     Dosage: 300 MG/4ML, BID; 30 DAYS ON, OFF 30 DAYS
     Route: 055
     Dates: start: 20151209, end: 201512
  23. PROAIR HFA 108 (90 BASE) MCG/ACT AERS (ALBUTEROL SULFATE) [Concomitant]
     Indication: COUGH
     Dosage: 2 PUFFS Q4-6H PRN
  24. CETIRIZINE HCL CHILDRENS ALRGY [Concomitant]
     Dosage: 1 MG/ML; 2 TSP QD
  25. HYPERSAL 7% [Concomitant]
     Dosage: 1 VIAL, BID
     Route: 055

REACTIONS (3)
  - Tracheal haemorrhage [Fatal]
  - Inappropriate schedule of drug administration [Recovered/Resolved]
  - Hypovolaemic shock [Fatal]

NARRATIVE: CASE EVENT DATE: 201512
